FAERS Safety Report 10347093 (Version 1)
Quarter: 2014Q3

REPORT INFORMATION
  Report Type: Spontaneous
  Country: US (occurrence: None)
  Receive Date: 20140725
  Receipt Date: 20140725
  Transmission Date: 20150326
  Serious: Yes (Other)
  Sender: FDA-Public Use
  Company Number: None

PATIENT
  Age: 44 Year
  Sex: Female
  Weight: 113.4 kg

DRUGS (1)
  1. ULTRAM [Suspect]
     Active Substance: TRAMADOL HYDROCHLORIDE
     Indication: ARTHRALGIA
     Dosage: 1-2 TABS AS NEEDED TAKEN BY MOUTH
     Route: 048

REACTIONS (6)
  - Madarosis [None]
  - Pruritus [None]
  - Rash erythematous [None]
  - Eye swelling [None]
  - Skin burning sensation [None]
  - Skin exfoliation [None]

NARRATIVE: CASE EVENT DATE: 20140719
